FAERS Safety Report 7776170-4 (Version None)
Quarter: 2011Q3

REPORT INFORMATION
  Report Type: 
  Country: None (occurrence: None)
  Receive Date: 20110926
  Receipt Date: 20110919
  Transmission Date: 20111222
  Serious: Yes (Hospitalization, Other)
  Sender: FDA-Public Use
  Company Number: DE-BRISTOL-MYERS SQUIBB COMPANY-15645229

PATIENT
  Age: 53 Year
  Sex: Female
  Weight: 51 kg

DRUGS (3)
  1. TEMAZEPAM [Concomitant]
     Dates: start: 20110404
  2. LEVOTHYROXINE SODIUM [Concomitant]
  3. IPILIMUMAB [Suspect]
     Indication: MALIGNANT MELANOMA
     Dosage: VIAL # 221762,3MG/KG
     Route: 042
     Dates: start: 20110201, end: 20110315

REACTIONS (8)
  - BLINDNESS [None]
  - NEUROSENSORY HYPOACUSIS [None]
  - IRIDOCYCLITIS [None]
  - BRONCHITIS [None]
  - COUGH [None]
  - HEADACHE [None]
  - FATIGUE [None]
  - RENAL FAILURE ACUTE [None]
